FAERS Safety Report 16920341 (Version 2)
Quarter: 2020Q1

REPORT INFORMATION
  Report Type: Report from Study
  Country: GB (occurrence: GB)
  Receive Date: 20191015
  Receipt Date: 20200122
  Transmission Date: 20200409
  Serious: Yes (Other)
  Sender: FDA-Public Use
  Company Number: PHHY2019GB103336

PATIENT
  Sex: Female

DRUGS (1)
  1. GILENYA [Suspect]
     Active Substance: FINGOLIMOD HYDROCHLORIDE
     Indication: MULTIPLE SCLEROSIS
     Dosage: 0.5 MG, QD
     Route: 048
     Dates: start: 20190325

REACTIONS (16)
  - Optic neuritis [Unknown]
  - Lower respiratory tract infection [Unknown]
  - Alopecia [Unknown]
  - Colour blindness [Unknown]
  - Influenza like illness [Unknown]
  - Nasopharyngitis [Unknown]
  - Eye pain [Unknown]
  - Affective disorder [Unknown]
  - Stress [Unknown]
  - Depression [Unknown]
  - Concomitant disease aggravated [Unknown]
  - Vomiting [Unknown]
  - Viral infection [Unknown]
  - Tooth disorder [Unknown]
  - Nausea [Unknown]
  - Hyperhidrosis [Unknown]
